FAERS Safety Report 8663986 (Version 5)
Quarter: 2013Q4

REPORT INFORMATION
  Report Type: Spontaneous
  Country: US (occurrence: US)
  Receive Date: 20120713
  Receipt Date: 20131107
  Transmission Date: 20140711
  Serious: Yes (Hospitalization, Other)
  Sender: FDA-Public Use
  Company Number: US-009507513-1207USA001105

PATIENT
  Sex: Female
  Weight: 115.65 kg

DRUGS (2)
  1. NUVARING [Suspect]
     Indication: MENSTRUAL CYCLE MANAGEMENT
     Dosage: UNK
     Route: 067
     Dates: start: 200605, end: 200608
  2. NUVARING [Suspect]
     Indication: DYSFUNCTIONAL UTERINE BLEEDING

REACTIONS (12)
  - Pulmonary embolism [Unknown]
  - Type 2 diabetes mellitus [Unknown]
  - Off label use [Unknown]
  - Pleurisy [Unknown]
  - Pleuritic pain [Unknown]
  - Depression [Unknown]
  - Anaemia [Unknown]
  - Incorrect drug administration duration [Unknown]
  - Ureaplasma infection [Unknown]
  - Metrorrhagia [Unknown]
  - Vulvovaginal candidiasis [Unknown]
  - Adverse event [Unknown]
